FAERS Safety Report 21519369 (Version 1)
Quarter: 2022Q4

REPORT INFORMATION
  Report Type: Spontaneous
  Country: US (occurrence: None)
  Receive Date: 20221027
  Receipt Date: 20221027
  Transmission Date: 20230113
  Serious: Yes (Other)
  Sender: FDA-Public Use
  Company Number: None

PATIENT
  Age: 77 Year
  Sex: Female
  Weight: 61.23 kg

DRUGS (4)
  1. COSOPT PF [Suspect]
     Active Substance: DORZOLAMIDE HYDROCHLORIDE\TIMOLOL MALEATE
     Indication: Cataract
     Dosage: FREQUENCY : TWICE A DAY;  EYE DROPS ?
     Route: 031
     Dates: start: 202103
  2. GNC Women^s Multivitamin (ultra mega) [Concomitant]
  3. VITAMIN D [Concomitant]
     Active Substance: VITAMIN D NOS
  4. VITAMIN C [Concomitant]
     Active Substance: ASCORBIC ACID

REACTIONS (9)
  - Pigmentation disorder [None]
  - Dry eye [None]
  - Ocular hyperaemia [None]
  - Unevaluable event [None]
  - Lid sulcus deepened [None]
  - Alopecia [None]
  - Nightmare [None]
  - Insomnia [None]
  - Memory impairment [None]
